FAERS Safety Report 17070880 (Version 2)
Quarter: 2025Q2

REPORT INFORMATION
  Report Type: Spontaneous
  Country: FR (occurrence: FR)
  Receive Date: 20191125
  Receipt Date: 20250502
  Transmission Date: 20250716
  Serious: Yes (Other)
  Sender: MYLAN
  Company Number: FR-UCBSA-2016010890

PATIENT

DRUGS (8)
  1. LEVETIRACETAM [Suspect]
     Active Substance: LEVETIRACETAM
     Indication: Epilepsy
  2. LEVETIRACETAM [Suspect]
     Active Substance: LEVETIRACETAM
  3. LEVETIRACETAM [Suspect]
     Active Substance: LEVETIRACETAM
     Route: 064
  4. LEVETIRACETAM [Suspect]
     Active Substance: LEVETIRACETAM
     Route: 064
  5. LEVETIRACETAM [Suspect]
     Active Substance: LEVETIRACETAM
  6. LEVETIRACETAM [Suspect]
     Active Substance: LEVETIRACETAM
  7. LEVETIRACETAM [Suspect]
     Active Substance: LEVETIRACETAM
     Route: 064
  8. LEVETIRACETAM [Suspect]
     Active Substance: LEVETIRACETAM
     Route: 064

REACTIONS (5)
  - Speech disorder developmental [Unknown]
  - Motor developmental delay [Unknown]
  - Asthma [Unknown]
  - Eczema [Unknown]
  - Foetal exposure during pregnancy [Unknown]
